FAERS Safety Report 19991865 (Version 2)
Quarter: 2021Q4

REPORT INFORMATION
  Report Type: Report from Study
  Country: US (occurrence: US)
  Receive Date: 20211025
  Receipt Date: 20211109
  Transmission Date: 20220304
  Serious: Yes (Hospitalization, Other)
  Sender: FDA-Public Use
  Company Number: US-BRISTOL-MYERS SQUIBB COMPANY-BMS-2021-062809

PATIENT
  Age: 18 Year
  Sex: Male
  Weight: 56.1 kg

DRUGS (8)
  1. NIVOLUMAB [Suspect]
     Active Substance: NIVOLUMAB
     Indication: Hodgkin^s disease
     Dosage: UNK
     Route: 065
     Dates: start: 20210612, end: 20210612
  2. NIVOLUMAB [Suspect]
     Active Substance: NIVOLUMAB
     Dosage: 173 MILLIGRAM
     Route: 042
     Dates: end: 20210708
  3. DACARBAZINE [Suspect]
     Active Substance: DACARBAZINE
     Indication: Hodgkin^s disease
     Dosage: 1200 MILLIGRAM
     Route: 042
     Dates: start: 20210611, end: 20210624
  4. DACARBAZINE [Suspect]
     Active Substance: DACARBAZINE
     Dosage: 620 MILLIGRAM
     Route: 042
     Dates: end: 20210708
  5. DOXORUBICIN HYDROCHLORIDE [Suspect]
     Active Substance: DOXORUBICIN HYDROCHLORIDE
     Indication: Hodgkin^s disease
     Dosage: 80 MILLIGRAM
     Route: 042
     Dates: start: 20210611, end: 20210624
  6. DOXORUBICIN HYDROCHLORIDE [Suspect]
     Active Substance: DOXORUBICIN HYDROCHLORIDE
     Dosage: 41 MILLIGRAM
     Route: 042
     Dates: end: 20210708
  7. VINBLASTINE SULFATE [Suspect]
     Active Substance: VINBLASTINE SULFATE
     Indication: Hodgkin^s disease
     Dosage: 20 MILLIGRAM
     Route: 042
     Dates: start: 20210611, end: 20210624
  8. VINBLASTINE SULFATE [Suspect]
     Active Substance: VINBLASTINE SULFATE
     Dosage: 10 MILLIGRAM
     Route: 042
     Dates: end: 20210708

REACTIONS (4)
  - Infusion related reaction [Recovered/Resolved]
  - Sepsis [Unknown]
  - Neutrophil count decreased [Recovered/Resolved]
  - Procedural complication [Recovered/Resolved]

NARRATIVE: CASE EVENT DATE: 20210612
